FAERS Safety Report 9087467 (Version 1)
Quarter: 2013Q1

REPORT INFORMATION
  Report Type: Report from Study
  Country: US (occurrence: US)
  Receive Date: 20130201
  Receipt Date: 20130201
  Transmission Date: 20140127
  Serious: No
  Sender: FDA-Public Use
  Company Number: US-ABBOTT-12P-163-0926601-00

PATIENT
  Age: 57 Year
  Sex: Female

DRUGS (10)
  1. HUMIRA [Suspect]
     Indication: RHEUMATOID ARTHRITIS
     Route: 058
     Dates: start: 201203
  2. DIOVAN [Suspect]
  3. MOBIC [Concomitant]
     Indication: PAIN
     Dosage: 7.5MG DAILY
  4. FOLIC ACID [Concomitant]
     Indication: PRODUCT USED FOR UNKNOWN INDICATION
     Dosage: 1MG DAILY
  5. EFFEXOR [Concomitant]
     Indication: DEPRESSION
     Dosage: 75MG DAILY
  6. PLAQUENIL [Concomitant]
     Indication: PAIN
     Dosage: 200MG TWICE DAILY
  7. ALLEGRA [Concomitant]
     Indication: HYPERSENSITIVITY
     Dosage: 180MG DAILY
  8. VITAMINS [Concomitant]
     Indication: PRODUCT USED FOR UNKNOWN INDICATION
     Dosage: DAILY
  9. BYSTOLIC [Concomitant]
     Indication: HYPERTENSION
     Dosage: DAILY
  10. ALLERGY SHOTS [Concomitant]
     Indication: SEASONAL ALLERGY
     Dates: start: 201208

REACTIONS (6)
  - Rhinorrhoea [Not Recovered/Not Resolved]
  - Increased upper airway secretion [Not Recovered/Not Resolved]
  - Hypersensitivity [Unknown]
  - Cough [Unknown]
  - Injection site bruising [Not Recovered/Not Resolved]
  - Laceration [Not Recovered/Not Resolved]
